FAERS Safety Report 6021983-2 (Version None)
Quarter: 2008Q4

REPORT INFORMATION
  Report Type: 
  Country: None (occurrence: None)
  Receive Date: 20081229
  Receipt Date: 20081223
  Transmission Date: 20090506
  Serious: Yes (Death)
  Sender: FDA-Public Use
  Company Number: US-ASTRAZENECA-2008AC03385

PATIENT
  Age: 57 Year
  Sex: Male

DRUGS (8)
  1. ACETAMINOPHEN [Suspect]
     Route: 048
  2. PROPRANOLOL [Suspect]
     Route: 048
  3. LISINOPRIL [Suspect]
     Route: 048
  4. METHADONE [Suspect]
     Route: 048
  5. TRAMADOL [Suspect]
     Route: 048
  6. BUPROPION [Suspect]
     Route: 048
  7. GABAPENTIN [Suspect]
     Route: 048
  8. NAPROXEN [Suspect]
     Route: 048

REACTIONS (2)
  - CARDIO-RESPIRATORY ARREST [None]
  - COMPLETED SUICIDE [None]
